FAERS Safety Report 5357418-2 (Version None)
Quarter: 2007Q2

REPORT INFORMATION
  Report Type: 
  Country: None (occurrence: None)
  Receive Date: 20070530
  Receipt Date: 20061110
  Transmission Date: 20071010
  Serious: Yes (Other)
  Sender: FDA-Public Use
  Company Number: US200607003192

PATIENT
  Age: 56 Year
  Sex: Female
  Weight: 71.2 kg

DRUGS (5)
  1. ZYPREXA [Suspect]
     Dosage: SEE IMAGE
     Dates: start: 20020212, end: 20031007
  2. ZYPREXA [Suspect]
     Dosage: SEE IMAGE
     Dates: start: 20020212, end: 20031007
  3. ZYPREXA [Suspect]
     Dosage: SEE IMAGE
     Dates: start: 20020212, end: 20031007
  4. VENLAFAXINE HCL [Concomitant]
  5. ATENOLOL [Concomitant]

REACTIONS (6)
  - DIABETES MELLITUS [None]
  - DIABETIC COMA [None]
  - DIABETIC NEUROPATHY [None]
  - HYPERINSULINISM [None]
  - METABOLIC DISORDER [None]
  - OBESITY [None]
